FAERS Safety Report 12049073 (Version 1)
Quarter: 2016Q1

REPORT INFORMATION
  Report Type: Report from Study
  Country: US (occurrence: US)
  Receive Date: 20160209
  Receipt Date: 20160209
  Transmission Date: 20160526
  Serious: No
  Sender: FDA-Public Use
  Company Number: US-ABBVIE-15P-163-1422881-00

PATIENT
  Age: 56 Year
  Sex: Female
  Weight: 65.83 kg

DRUGS (24)
  1. FENNEL. [Concomitant]
     Active Substance: FENNEL
     Indication: ABDOMINAL DISCOMFORT
  2. TESTOSTERONE. [Concomitant]
     Active Substance: TESTOSTERONE
     Indication: HORMONE REPLACEMENT THERAPY
     Route: 061
  3. ALPRAZOLAM. [Concomitant]
     Active Substance: ALPRAZOLAM
     Indication: INSOMNIA
  4. ATROVENT [Concomitant]
     Active Substance: IPRATROPIUM BROMIDE
     Indication: HYPERSENSITIVITY
  5. ESTROGEN W/TESTOSTERONE [Concomitant]
     Indication: HORMONE REPLACEMENT THERAPY
     Route: 061
  6. DESONIDE. [Concomitant]
     Active Substance: DESONIDE
     Indication: PSORIASIS
  7. REEF EYE DROPS [Concomitant]
     Indication: DRY EYE
  8. HUMIRA [Suspect]
     Active Substance: ADALIMUMAB
     Indication: PSORIASIS
     Route: 065
     Dates: start: 20130501, end: 20130501
  9. BUPROPION. [Concomitant]
     Active Substance: BUPROPION
     Indication: DEPRESSION
  10. DULOXETINE. [Concomitant]
     Active Substance: DULOXETINE
     Indication: DEPRESSION
  11. CLOBEX [Concomitant]
     Active Substance: CLOBETASOL PROPIONATE
     Indication: PSORIASIS
  12. MELATONIN L-THEANINE [Concomitant]
     Indication: INSOMNIA
  13. VITAMIN B COMPLEX [Concomitant]
     Active Substance: CYANOCOBALAMIN\DEXPANTHENOL\NIACINAMIDE\PYRIDOXINE HYDROCHLORIDE\RIBOFLAVIN 5^-PHOSPHATE SODIUM\THIAMINE HYDROCHLORIDE\VITAMIN B COMPLEX
     Indication: VITAMIN SUPPLEMENTATION
  14. TYLENOL [Concomitant]
     Active Substance: ACETAMINOPHEN
     Indication: HEADACHE
  15. LOTEMAX [Concomitant]
     Active Substance: LOTEPREDNOL ETABONATE
     Indication: ECZEMA
     Route: 061
  16. TYLENOL [Concomitant]
     Active Substance: ACETAMINOPHEN
     Indication: ARTHRALGIA
  17. HUMIRA [Suspect]
     Active Substance: ADALIMUMAB
     Route: 065
     Dates: start: 20130508, end: 20141022
  18. CLOBETASOL [Concomitant]
     Active Substance: CLOBETASOL
     Indication: PSORIASIS
  19. BIOTIN [Concomitant]
     Active Substance: BIOTIN
     Indication: NAIL PSORIASIS
  20. HUMIRA [Suspect]
     Active Substance: ADALIMUMAB
     Route: 065
     Dates: start: 20150807
  21. L-METHYLFOLATE [Concomitant]
     Indication: VITAMIN SUPPLEMENTATION
  22. MURO 128 [Concomitant]
     Active Substance: SODIUM CHLORIDE
     Indication: DRY EYE
  23. OREGANO OIL [Concomitant]
     Indication: UNEVALUABLE EVENT
  24. CHELATED ZINC [Concomitant]
     Indication: VITAMIN SUPPLEMENTATION

REACTIONS (19)
  - Psoriasis [Not Recovered/Not Resolved]
  - Influenza [Recovered/Resolved]
  - Irritable bowel syndrome [Unknown]
  - Ear infection [Recovered/Resolved]
  - Pain [Recovered/Resolved]
  - Constipation [Unknown]
  - Diarrhoea [Recovering/Resolving]
  - Ear infection [Recovered/Resolved]
  - Abdominal pain upper [Unknown]
  - Colitis [Not Recovered/Not Resolved]
  - Ankylosing spondylitis [Not Recovered/Not Resolved]
  - Nephrolithiasis [Recovered/Resolved]
  - Sinusitis [Recovered/Resolved]
  - Diarrhoea [Unknown]
  - Dermatitis [Unknown]
  - Influenza [Recovered/Resolved]
  - Influenza [Recovered/Resolved]
  - Nausea [Recovered/Resolved]
  - Sinusitis [Recovered/Resolved]

NARRATIVE: CASE EVENT DATE: 201410
